FAERS Safety Report 16067230 (Version 2)
Quarter: 2019Q1

REPORT INFORMATION
  Report Type: Report from Study
  Country: JP (occurrence: JP)
  Receive Date: 20190313
  Receipt Date: 20190318
  Transmission Date: 20190418
  Serious: Yes (Death)
  Sender: FDA-Public Use
  Company Number: JP-BAUSCH-BL-2019-007685

PATIENT
  Age: 76 Year
  Sex: Male
  Weight: 67.5 kg

DRUGS (11)
  1. EQUA [Concomitant]
     Active Substance: VILDAGLIPTIN
     Indication: DIABETES MELLITUS
     Route: 048
     Dates: start: 20130521, end: 20180719
  2. ADALAT CC [Concomitant]
     Active Substance: NIFEDIPINE
     Indication: HYPERTENSION
     Route: 048
     Dates: start: 20130521, end: 20180719
  3. CLENAFIN TOPICAL SOLUTION 10% [Suspect]
     Active Substance: EFINACONAZOLE
     Indication: DERMATOPHYTOSIS OF NAIL
     Dosage: /24 HOURS
     Route: 061
     Dates: start: 20160511, end: 20170626
  4. ARTIST [Concomitant]
     Active Substance: CARVEDILOL
     Indication: HYPERTENSION
     Route: 048
     Dates: start: 20130521, end: 20180719
  5. CARDENALIN [Concomitant]
     Active Substance: DOXAZOSIN MESYLATE
     Indication: HYPERTENSION
     Route: 048
     Dates: start: 20130521, end: 20180719
  6. BAYASPIRIN [Concomitant]
     Active Substance: ASPIRIN
     Indication: ISCHAEMIC HEART DISEASE PROPHYLAXIS
     Route: 048
     Dates: start: 20130521, end: 20180719
  7. LIPITOR [Concomitant]
     Active Substance: ATORVASTATIN CALCIUM
     Indication: HYPERCHOLESTEROLAEMIA
     Route: 048
     Dates: start: 20130521, end: 20180719
  8. ALFAROL [Concomitant]
     Active Substance: ALFACALCIDOL
     Indication: RENAL IMPAIRMENT
     Route: 048
     Dates: start: 20130521, end: 20180719
  9. FUROSEMIDE. [Concomitant]
     Active Substance: FUROSEMIDE
     Indication: RENAL IMPAIRMENT
     Route: 048
     Dates: start: 20130521, end: 20180719
  10. MICARDIS [Concomitant]
     Active Substance: TELMISARTAN
     Indication: HYPERTENSION
     Route: 048
     Dates: start: 20130521, end: 20180719
  11. DIART [Concomitant]
     Active Substance: AZOSEMIDE
     Indication: RENAL IMPAIRMENT
     Route: 048
     Dates: start: 20130521, end: 20180719

REACTIONS (1)
  - Cardiac failure [Fatal]
